FAERS Safety Report 17495431 (Version 1)
Quarter: 2020Q1

REPORT INFORMATION
  Report Type: Spontaneous
  Country: FI (occurrence: FI)
  Receive Date: 20200303
  Receipt Date: 20200303
  Transmission Date: 20200409
  Serious: Yes (Death)
  Sender: FDA-Public Use
  Company Number: FI-JNJFOC-20200300959

PATIENT
  Sex: Male

DRUGS (1)
  1. RIVAROXABAN [Suspect]
     Active Substance: RIVAROXABAN
     Indication: ATRIAL FIBRILLATION
     Dosage: UNK
     Route: 048

REACTIONS (10)
  - Depressed level of consciousness [Fatal]
  - Condition aggravated [Fatal]
  - Fall [Fatal]
  - Haemorrhage [Fatal]
  - Dizziness [Fatal]
  - Haemoglobin decreased [Fatal]
  - Faeces discoloured [Fatal]
  - Anaemia [Fatal]
  - Rib fracture [Fatal]
  - Haematoma [Fatal]
